FAERS Safety Report 4583211-4 (Version None)
Quarter: 2005Q1

REPORT INFORMATION
  Report Type: 
  Country: None (occurrence: None)
  Receive Date: 20050125
  Receipt Date: 20040907
  Transmission Date: 20050727
  Serious: No
  Sender: FDA-Public Use
  Company Number: USA030844263

PATIENT
  Age: 59 Year
  Sex: Female
  Weight: 55 kg

DRUGS (12)
  1. FORTEO [Suspect]
     Indication: OSTEOPOROSIS
     Dosage: 20 UG DAY
     Dates: start: 20020101, end: 20040801
  2. NORVASC [Concomitant]
  3. PLAQUENIL [Concomitant]
  4. PREDNISONE [Concomitant]
  5. REMERON [Concomitant]
  6. LEVOXYL [Concomitant]
  7. VICODIN [Concomitant]
  8. LIBRIUM (CHLORODIAZEPOXIDE HYDROCHLORIDE) [Concomitant]
  9. CALCIUM GLUCONATE [Concomitant]
  10. VITAMINS [Concomitant]
  11. MAGNESIUM [Concomitant]
  12. TEMAZEPAM [Concomitant]

REACTIONS (6)
  - BACK PAIN [None]
  - BLOOD CALCIUM DECREASED [None]
  - DYSKINESIA [None]
  - MUSCLE SPASMS [None]
  - TREMOR [None]
  - URINARY TRACT INFECTION [None]
